FAERS Safety Report 8824347 (Version 1)
Quarter: 2012Q4

REPORT INFORMATION
  Report Type: 
  Country: FR (occurrence: FR)
  Receive Date: 20121004
  Receipt Date: 20121004
  Transmission Date: 20130627
  Serious: Yes (Life-Threatening)
  Sender: FDA-Public Use
  Company Number: FR-009507513-1210FRA001630

PATIENT
  Age: 74 Year
  Sex: Female

DRUGS (10)
  1. STROMECTOL [Suspect]
     Indication: ACARODERMATITIS
     Dosage: 18 mg, qd
     Route: 048
     Dates: start: 20120720, end: 20120720
  2. TAHOR [Concomitant]
  3. CORDARONE [Concomitant]
  4. INEXIUM [Concomitant]
  5. ATARAX (HYDROXYZINE HYDROCHLORIDE) [Concomitant]
  6. EUCREAS [Concomitant]
  7. METFORMIN [Concomitant]
  8. ZANIDIP [Concomitant]
  9. PRETERAX (INDAPAMIDE (+) PERINDOPRIL ARGININE) [Concomitant]
  10. DAFALGAN [Concomitant]

REACTIONS (4)
  - Respiratory acidosis [Recovered/Resolved]
  - Urticaria [Recovered/Resolved]
  - Eosinophilia [Recovered/Resolved]
  - Bronchospasm [Recovered/Resolved]
